FAERS Safety Report 21786582 (Version 6)
Quarter: 2023Q2

REPORT INFORMATION
  Report Type: Spontaneous
  Country: CA (occurrence: CA)
  Receive Date: 20221228
  Receipt Date: 20230426
  Transmission Date: 20230722
  Serious: Yes (Hospitalization, Other)
  Sender: FDA-Public Use
  Company Number: CA-CELLTRION INC.-2022CA021814

PATIENT

DRUGS (6)
  1. INFLECTRA [Suspect]
     Active Substance: INFLIXIMAB-DYYB
     Indication: Colitis ulcerative
     Dosage: 700 MG, W0, W2, W6 AND Q8 WEEKS
     Route: 042
     Dates: start: 20221024
  2. INFLECTRA [Suspect]
     Active Substance: INFLIXIMAB-DYYB
     Dosage: 700 MG, W0, W2, W6 AND Q8 WEEKS
     Route: 042
     Dates: start: 20221206
  3. INFLECTRA [Suspect]
     Active Substance: INFLIXIMAB-DYYB
     Dosage: 10 MG/KG EVERY 4 WEEKS, NOT STARTED YET
     Route: 042
     Dates: start: 20230314
  4. INFLECTRA [Suspect]
     Active Substance: INFLIXIMAB-DYYB
     Dosage: 10 MG/KG, 666 MG  5 WEEKS
     Route: 042
     Dates: start: 20230418
  5. PREDNISONE [Concomitant]
     Active Substance: PREDNISONE
     Dosage: UNK
  6. MESALAMINE [Concomitant]
     Active Substance: MESALAMINE
     Dosage: UNK

REACTIONS (11)
  - C-reactive protein increased [Recovering/Resolving]
  - Anaemia [Unknown]
  - Condition aggravated [Recovering/Resolving]
  - Intestinal stenosis [Unknown]
  - Intestinal obstruction [Unknown]
  - Drug level below therapeutic [Unknown]
  - Tenderness [Unknown]
  - Hepatic mass [Unknown]
  - Nausea [Unknown]
  - Vomiting [Unknown]
  - Off label use [Unknown]

NARRATIVE: CASE EVENT DATE: 20220101
